FAERS Safety Report 25017631 (Version 1)
Quarter: 2025Q1

REPORT INFORMATION
  Report Type: Spontaneous
  Country: US (occurrence: None)
  Receive Date: 20250226
  Receipt Date: 20250226
  Transmission Date: 20250409
  Serious: No
  Sender: FDA-CTU
  Company Number: None

PATIENT
  Age: 55 Year
  Sex: Female
  Weight: 65.77 kg

DRUGS (9)
  1. ZOLEDRONIC ACID [Suspect]
     Active Substance: ZOLEDRONIC ACID
     Indication: Osteoporosis
     Dates: start: 20250103, end: 20250103
  2. Combipatch 0.05mg/0.14mg patch. 1/2 patch twice a week - menopause sym [Concomitant]
  3. Estradiol 0.01 vag cream - menopause symptom [Concomitant]
  4. EMGALITY [Concomitant]
     Active Substance: GALCANEZUMAB-GNLM
  5. NITROFURANTOIN [Suspect]
     Active Substance: NITROFURANTOIN
  6. VITAMIN D3 [Concomitant]
     Active Substance: CHOLECALCIFEROL
  7. CALCIUM CARBONATE [Concomitant]
     Active Substance: CALCIUM CARBONATE
  8. Magnesium Citrate 250 [Concomitant]
  9. Vitamin B3 twice a day [Concomitant]

REACTIONS (11)
  - Infusion related reaction [None]
  - Chills [None]
  - Muscle spasms [None]
  - Abdominal rigidity [None]
  - Pyrexia [None]
  - Fatigue [None]
  - Headache [None]
  - Loss of personal independence in daily activities [None]
  - Movement disorder [None]
  - Flank pain [None]
  - Renal impairment [None]

NARRATIVE: CASE EVENT DATE: 20250104
